FAERS Safety Report 5239645-8 (Version None)
Quarter: 2007Q1

REPORT INFORMATION
  Report Type: 
  Country: None (occurrence: None)
  Receive Date: 20070216
  Receipt Date: 20070215
  Transmission Date: 20070707
  Serious: Yes (Other)
  Sender: FDA-Public Use
  Company Number: DE-GLAXOSMITHKLINE-D0052281A

PATIENT
  Sex: Female

DRUGS (1)
  1. QUILONUM RETARD [Suspect]
     Indication: SCHIZOAFFECTIVE DISORDER
     Dosage: 450MG UNKNOWN
     Route: 048

REACTIONS (3)
  - AUTOIMMUNE THYROIDITIS [None]
  - BLOOD THYROID STIMULATING HORMONE INCREASED [None]
  - HYPOTHYROIDISM [None]
